FAERS Safety Report 24067220 (Version 1)
Quarter: 2024Q3

REPORT INFORMATION
  Report Type: Report from Study
  Country: US (occurrence: US)
  Receive Date: 20240709
  Receipt Date: 20240709
  Transmission Date: 20241017
  Serious: Yes (Hospitalization)
  Sender: ROCHE
  Company Number: US-ROCHE-10000013096

PATIENT
  Age: 67 Year
  Sex: Female
  Weight: 74.84 kg

DRUGS (14)
  1. OCREVUS [Suspect]
     Active Substance: OCRELIZUMAB
     Indication: Relapsing-remitting multiple sclerosis
     Route: 042
  2. OCREVUS [Suspect]
     Active Substance: OCRELIZUMAB
     Dosage: THERAPY END DATE: 10-APR-2024
     Route: 042
  3. CLONAZEPAM [Suspect]
     Active Substance: CLONAZEPAM
     Indication: Anxiety
     Dosage: STARTED 2016 OR 2015. TAKES BOTH PILLS AT BEDTIME TO SLEEP.?MANUFACTURED BY AUROBINDO
     Route: 048
  4. CLONAZEPAM [Suspect]
     Active Substance: CLONAZEPAM
     Indication: Depression
  5. CLONAZEPAM [Suspect]
     Active Substance: CLONAZEPAM
     Indication: Insomnia
  6. PRISTIQ EXTENDED-RELEASE [Concomitant]
     Active Substance: DESVENLAFAXINE SUCCINATE
  7. REXULTI [Concomitant]
     Active Substance: BREXPIPRAZOLE
  8. TRAZODONE [Concomitant]
     Active Substance: TRAZODONE HYDROCHLORIDE
  9. PREGABALIN [Concomitant]
     Active Substance: PREGABALIN
  10. SOLIFENACIN [Concomitant]
     Active Substance: SOLIFENACIN
  11. OXYBUTYNIN [Concomitant]
     Active Substance: OXYBUTYNIN\OXYBUTYNIN CHLORIDE
  12. ZOLOFT [Concomitant]
     Active Substance: SERTRALINE HYDROCHLORIDE
  13. VERAPAMIL [Concomitant]
     Active Substance: VERAPAMIL HYDROCHLORIDE
  14. COLESEVELAM [Concomitant]
     Active Substance: COLESEVELAM

REACTIONS (21)
  - Pulmonary sepsis [Recovered/Resolved]
  - Fatigue [Not Recovered/Not Resolved]
  - Vertigo [Recovered/Resolved]
  - Blood glucose increased [Not Recovered/Not Resolved]
  - Radius fracture [Recovered/Resolved]
  - Tibia fracture [Recovered/Resolved]
  - Fall [Unknown]
  - Pain [Not Recovered/Not Resolved]
  - Glycosylated haemoglobin increased [Not Recovered/Not Resolved]
  - Pneumonia [Recovered/Resolved]
  - Rib fracture [Recovered/Resolved]
  - COVID-19 [Recovered/Resolved]
  - Insomnia [Not Recovered/Not Resolved]
  - Therapeutic response shortened [Unknown]
  - Weight decreased [Recovered/Resolved]
  - Hypokinesia [Recovered/Resolved]
  - Abdominal pain upper [Recovered/Resolved]
  - Memory impairment [Not Recovered/Not Resolved]
  - Multiple sclerosis relapse [Recovered/Resolved]
  - Urinary incontinence [Not Recovered/Not Resolved]
  - Anal incontinence [Not Recovered/Not Resolved]

NARRATIVE: CASE EVENT DATE: 20200101
